FAERS Safety Report 24008475 (Version 1)
Quarter: 2024Q2

REPORT INFORMATION
  Report Type: Spontaneous
  Country: US (occurrence: US)
  Receive Date: 20240625
  Receipt Date: 20240625
  Transmission Date: 20240715
  Serious: Yes (Other)
  Sender: FDA-Public Use
  Company Number: US-CELLTRION INC.-2024US014802

PATIENT

DRUGS (3)
  1. INFLECTRA [Suspect]
     Active Substance: INFLIXIMAB-DYYB
     Indication: Pneumonitis
     Dosage: DOSE BASED ON BODY WEIGHT. UNKNOWN DOSE, RECEIVED EVERY 2 WEEKS
     Dates: start: 20240517, end: 20240603
  2. KEYTRUDA [Suspect]
     Active Substance: PEMBROLIZUMAB
     Indication: Neoplasm malignant
  3. BENADRYL [Concomitant]
     Active Substance: DIPHENHYDRAMINE HYDROCHLORIDE
     Indication: Premedication

REACTIONS (32)
  - Hypothermia [Unknown]
  - Pneumonitis [Unknown]
  - Condition aggravated [Unknown]
  - Dizziness postural [Unknown]
  - Polyuria [Unknown]
  - Dysphonia [Unknown]
  - Sneezing [Unknown]
  - Dry mouth [Unknown]
  - Thirst [Unknown]
  - Musculoskeletal disorder [Unknown]
  - Ill-defined disorder [Unknown]
  - Dehydration [Unknown]
  - Loss of personal independence in daily activities [Unknown]
  - Pain [Unknown]
  - Chest pain [Unknown]
  - Chest discomfort [Unknown]
  - Chills [Unknown]
  - Cough [Unknown]
  - Headache [Unknown]
  - Myalgia [Unknown]
  - Peripheral swelling [Unknown]
  - Hypersensitivity [Unknown]
  - Hypoaesthesia [Unknown]
  - Malaise [Unknown]
  - Skin disorder [Unknown]
  - Weight decreased [Unknown]
  - Nervous system disorder [Unknown]
  - Respiratory disorder [Unknown]
  - Hyperhidrosis [Unknown]
  - Dyspnoea [Unknown]
  - Fatigue [Unknown]
  - Intentional product use issue [Unknown]
